FAERS Safety Report 13047274 (Version 5)
Quarter: 2017Q2

REPORT INFORMATION
  Report Type: Spontaneous
  Country: NO (occurrence: NO)
  Receive Date: 20161220
  Receipt Date: 20170523
  Transmission Date: 20170830
  Serious: Yes (Hospitalization, Other)
  Sender: FDA-Public Use
  Company Number: NO-UCBSA-2016047796

PATIENT
  Age: 31 Year
  Sex: Female

DRUGS (20)
  1. TRILEPTAL [Suspect]
     Active Substance: OXCARBAZEPINE
     Indication: EPILEPSY
     Dosage: 600 MG X 2
     Dates: start: 19951124, end: 2003
  2. ORFIRIL [Suspect]
     Active Substance: VALPROIC ACID
     Dosage: 600+900
     Dates: start: 20150122
  3. IRON [Concomitant]
     Active Substance: IRON
     Indication: PRODUCT USED FOR UNKNOWN INDICATION
  4. DEPO-PROVERA [Concomitant]
     Active Substance: MEDROXYPROGESTERONE ACETATE
     Indication: PRODUCT USED FOR UNKNOWN INDICATION
     Dosage: UNK
  5. MULTIVITAMIN [Concomitant]
     Active Substance: VITAMINS
     Indication: PRODUCT USED FOR UNKNOWN INDICATION
  6. VALPROIC ACID. [Suspect]
     Active Substance: VALPROIC ACID
     Dosage: 300 + 600 MG (DURING 3. PREGNANCY)
  7. VALPROIC ACID. [Suspect]
     Active Substance: VALPROIC ACID
     Dosage: 600MG X 2
  8. VALPROIC ACID. [Suspect]
     Active Substance: VALPROIC ACID
     Indication: EPILEPSY
     Dosage: 600 MG X 2
  9. KEPPRA [Suspect]
     Active Substance: LEVETIRACETAM
     Indication: EPILEPSY
     Dosage: 500+1000MG
     Route: 064
     Dates: start: 20031023
  10. LAMICTAL [Suspect]
     Active Substance: LAMOTRIGINE
     Indication: EPILEPSY
     Dosage: UNK
     Dates: start: 1995
  11. VALPROIC ACID. [Suspect]
     Active Substance: VALPROIC ACID
     Indication: EPILEPSY
     Dosage: 600MG X 2
     Dates: start: 200404
  12. SELEXID [Concomitant]
     Active Substance: AMDINOCILLIN PIVOXIL HYDROCHLORIDE
     Indication: PRODUCT USED FOR UNKNOWN INDICATION
     Dosage: UNK
  13. VALPROIC ACID. [Suspect]
     Active Substance: VALPROIC ACID
     Dosage: 600 + 900 MG
  14. FOLIC ACID. [Concomitant]
     Active Substance: FOLIC ACID
     Indication: PRODUCT USED FOR UNKNOWN INDICATION
     Dosage: FOUR TABLETS OF FOLIC ACID DAILY
  15. FOLIC ACID. [Concomitant]
     Active Substance: FOLIC ACID
     Dosage: DOSES BETWEEN 0.4 MG AND 4 MG BEFORE AND DURING PREGNANCIES
  16. FOLIC ACID. [Concomitant]
     Active Substance: FOLIC ACID
     Dosage: 800 MICROGRAMS DAILY
     Dates: end: 20070210
  17. ORFIRIL [Suspect]
     Active Substance: VALPROIC ACID
     Indication: EPILEPSY
     Dosage: 600 MG X2
     Route: 064
     Dates: start: 19871014
  18. TRILEPTAL [Suspect]
     Active Substance: OXCARBAZEPINE
     Dosage: 600 MG X 2
     Route: 064
     Dates: start: 200312
  19. VALPROIC ACID. [Suspect]
     Active Substance: VALPROIC ACID
     Dosage: 600MG X 2
  20. FENEMAL [Suspect]
     Active Substance: PHENOBARBITAL
     Indication: EPILEPSY
     Dosage: UNK

REACTIONS (27)
  - Depression [Unknown]
  - Memory impairment [Unknown]
  - Aphasia [Unknown]
  - Drug ineffective [Unknown]
  - Fatigue [Unknown]
  - Somnolence [Unknown]
  - Sleep paralysis [Unknown]
  - Breast feeding [Unknown]
  - Chest discomfort [Unknown]
  - Pregnancy [Unknown]
  - Palpitations [Unknown]
  - Feeling drunk [Recovered/Resolved]
  - Rash [Unknown]
  - Drug effect incomplete [Unknown]
  - Dysarthria [Unknown]
  - Tension headache [Unknown]
  - Dyspnoea [Unknown]
  - Irritability [Unknown]
  - Premature delivery [Unknown]
  - Pulmonary embolism [Unknown]
  - Pruritus [Recovered/Resolved]
  - Dizziness [Unknown]
  - Metabolic disorder [Unknown]
  - Drop attacks [Unknown]
  - Myoclonic epilepsy [Unknown]
  - Aggression [Unknown]
  - Generalised tonic-clonic seizure [Unknown]

NARRATIVE: CASE EVENT DATE: 200312
